FAERS Safety Report 19768377 (Version 1)
Quarter: 2021Q3

REPORT INFORMATION
  Report Type: Spontaneous
  Country: US (occurrence: US)
  Receive Date: 20210831
  Receipt Date: 20210831
  Transmission Date: 20211014
  Serious: Yes (Other)
  Sender: FDA-Public Use
  Company Number: None

PATIENT
  Sex: Female
  Weight: 47.25 kg

DRUGS (5)
  1. SUPREP BOWEL PREP [Suspect]
     Active Substance: MAGNESIUM SULFATE\POTASSIUM SULFATE\SODIUM SULFATE
     Indication: BOWEL PREPARATION
     Dosage: ?          OTHER STRENGTH:6 OUNCE MIX W HOH;QUANTITY:6 OUNCE(S);OTHER FREQUENCY:TWO DOSE SPLIT REG;?
     Route: 048
     Dates: start: 20210623, end: 20210624
  2. ONE A DAY MULTI VITAMIN [Concomitant]
  3. DENIVIR [Concomitant]
  4. IMITREX [Concomitant]
     Active Substance: SUMATRIPTAN SUCCINATE
  5. TUMS [Concomitant]
     Active Substance: CALCIUM CARBONATE

REACTIONS (8)
  - Vomiting [None]
  - Insomnia [None]
  - Dehydration [None]
  - Muscle spasms [None]
  - Seizure [None]
  - Chills [None]
  - Diarrhoea [None]
  - Dizziness [None]
